FAERS Safety Report 10258420 (Version 1)
Quarter: 2014Q2

REPORT INFORMATION
  Report Type: Spontaneous
  Country: GB (occurrence: GB)
  Receive Date: 20140625
  Receipt Date: 20140625
  Transmission Date: 20141212
  Serious: Yes (Disabling)
  Sender: FDA-Public Use
  Company Number: GB-ABBVIE-14K-167-1252141-00

PATIENT
  Age: 13 Year
  Sex: Male

DRUGS (1)
  1. EPILIM CHRONO [Suspect]
     Indication: EPILEPSY
     Route: 048

REACTIONS (5)
  - Gastrooesophageal reflux disease [Unknown]
  - Eating disorder [Unknown]
  - Dyspepsia [Unknown]
  - Abdominal pain upper [Unknown]
  - Nausea [Unknown]
